FAERS Safety Report 17413023 (Version 1)
Quarter: 2020Q1

REPORT INFORMATION
  Report Type: Spontaneous
  Country: US (occurrence: US)
  Receive Date: 20200212
  Receipt Date: 20200212
  Transmission Date: 20200409
  Serious: Yes (Life-Threatening, Hospitalization)
  Sender: FDA-Public Use
  Company Number: None

PATIENT
  Age: 65 Year
  Sex: Male
  Weight: 99 kg

DRUGS (13)
  1. FUROSEMIDE 20 MG [Concomitant]
     Active Substance: FUROSEMIDE
  2. CHOLECALCIFEROL 1000 UNITS [Concomitant]
  3. OMEGA 3 1000 MG [Concomitant]
  4. TUMERIC 500 MG [Concomitant]
  5. RIVAROXABAN [Suspect]
     Active Substance: RIVAROXABAN
     Indication: DEEP VEIN THROMBOSIS
     Route: 048
  6. RIVAROXABAN [Suspect]
     Active Substance: RIVAROXABAN
     Indication: PULMONARY EMBOLISM
     Route: 048
  7. FOLIC ACID 1 MG [Concomitant]
  8. ALLOPURINOL 100 MG [Concomitant]
     Active Substance: ALLOPURINOL
  9. ASPIRIN 81 MG [Concomitant]
     Active Substance: ASPIRIN
  10. MINOCYCLINE [Concomitant]
     Active Substance: MINOCYCLINE HYDROCHLORIDE
  11. LEVOTHYROXINE 100 MCG [Concomitant]
     Active Substance: LEVOTHYROXINE
  12. POTASSIUM CHLORIDE 20 MEQ [Concomitant]
  13. PYRIDOXINE 100 MG [Concomitant]

REACTIONS (7)
  - Fatigue [None]
  - Dyspnoea [None]
  - Occult blood positive [None]
  - Asthenia [None]
  - Abdominal distension [None]
  - Melaena [None]
  - Haemoglobin decreased [None]

NARRATIVE: CASE EVENT DATE: 20190531
